FAERS Safety Report 23466518 (Version 1)
Quarter: 2024Q1

REPORT INFORMATION
  Report Type: Spontaneous
  Country: US (occurrence: None)
  Receive Date: 20240131
  Receipt Date: 20240131
  Transmission Date: 20240410
  Serious: Yes (Disabling, Other)
  Sender: FDA-Public Use
  Company Number: None

PATIENT
  Age: 53 Year
  Sex: Female
  Weight: 42.75 kg

DRUGS (3)
  1. TRIAMCINOLONE [Suspect]
     Active Substance: TRIAMCINOLONE
     Indication: Eczema
     Dosage: FREQUENCY : AS NEEDED;?
     Route: 061
  2. CLOBETASOL [Suspect]
     Active Substance: CLOBETASOL
  3. BENAZEPRIL [Concomitant]
     Active Substance: BENAZEPRIL HYDROCHLORIDE

REACTIONS (4)
  - Drug dependence [None]
  - Rash [None]
  - Rash [None]
  - Sleep deficit [None]

NARRATIVE: CASE EVENT DATE: 20211120
